FAERS Safety Report 9171819 (Version 1)
Quarter: 2013Q1

REPORT INFORMATION
  Report Type: Spontaneous
  Country: US (occurrence: None)
  Receive Date: 20130311
  Receipt Date: 20130311
  Transmission Date: 20140127
  Serious: No
  Sender: FDA-Public Use
  Company Number: AEUSA201200453

PATIENT
  Age: 13 Year
  Sex: Female
  Weight: 51 kg

DRUGS (4)
  1. ALBUTEIN [Suspect]
     Indication: TYPE IIA HYPERLIPIDAEMIA
     Route: 042
     Dates: start: 2010, end: 201209
  2. FISH OIL [Concomitant]
  3. MULTIVITAMINS [Concomitant]
  4. CRESTOR [Concomitant]

REACTIONS (1)
  - Hypersensitivity [None]
